FAERS Safety Report 25837319 (Version 1)
Quarter: 2025Q3

REPORT INFORMATION
  Report Type: Spontaneous
  Country: US (occurrence: US)
  Receive Date: 20250923
  Receipt Date: 20250923
  Transmission Date: 20251021
  Serious: Yes (Hospitalization, Other)
  Sender: ALEMBIC
  Company Number: US-ALEMBIC PHARMACUETICALS LIMITED-2025SCAL001229

PATIENT

DRUGS (1)
  1. DIVALPROEX SODIUM [Suspect]
     Active Substance: DIVALPROEX SODIUM
     Indication: Bipolar disorder
     Route: 065

REACTIONS (4)
  - Tertiary adrenal insufficiency [Recovering/Resolving]
  - Syncope [Recovering/Resolving]
  - Cortisol decreased [Recovering/Resolving]
  - Blood corticotrophin abnormal [Recovering/Resolving]
